FAERS Safety Report 24334092 (Version 11)
Quarter: 2025Q2

REPORT INFORMATION
  Report Type: Report from Study
  Country: CA (occurrence: CA)
  Receive Date: 20240918
  Receipt Date: 20250630
  Transmission Date: 20250717
  Serious: Yes (Other)
  Sender: BIOCON
  Company Number: CA-BIOCON BIOLOGICS LIMITED-BBL2024000482

PATIENT

DRUGS (15)
  1. OGIVRI [Suspect]
     Active Substance: TRASTUZUMAB-DKST
     Indication: Adenocarcinoma
     Route: 042
     Dates: start: 20240122
  2. OGIVRI [Suspect]
     Active Substance: TRASTUZUMAB-DKST
     Dosage: 690 MG, Q3W
     Route: 042
     Dates: start: 20240122
  3. OGIVRI [Suspect]
     Active Substance: TRASTUZUMAB-DKST
     Dosage: 6 MG/KG, Q3W
     Route: 042
     Dates: start: 20240122
  4. OGIVRI [Suspect]
     Active Substance: TRASTUZUMAB-DKST
     Route: 042
     Dates: start: 20240122
  5. OGIVRI [Suspect]
     Active Substance: TRASTUZUMAB-DKST
     Route: 042
     Dates: start: 20240122
  6. OGIVRI [Suspect]
     Active Substance: TRASTUZUMAB-DKST
     Route: 042
     Dates: start: 20240122
  7. OGIVRI [Suspect]
     Active Substance: TRASTUZUMAB-DKST
     Route: 065
     Dates: start: 20240729
  8. OGIVRI [Suspect]
     Active Substance: TRASTUZUMAB-DKST
     Dosage: 6 MG/KG, Q3W
     Route: 042
     Dates: start: 20240122
  9. OGIVRI [Suspect]
     Active Substance: TRASTUZUMAB-DKST
     Dosage: 6 MG/KG, Q3W (1 X 440MG)
     Route: 042
     Dates: start: 20240122
  10. OGIVRI [Suspect]
     Active Substance: TRASTUZUMAB-DKST
     Dosage: 6 MG/KG, Q3W (2 X 150MG)
     Route: 042
     Dates: start: 20240122
  11. OGIVRI [Suspect]
     Active Substance: TRASTUZUMAB-DKST
     Dosage: 6 MG/KG, Q3W
     Route: 042
     Dates: start: 20240122
  12. OGIVRI [Suspect]
     Active Substance: TRASTUZUMAB-DKST
     Dosage: 6 MG/KG, Q3W
     Route: 042
     Dates: start: 20240122
  13. OGIVRI [Suspect]
     Active Substance: TRASTUZUMAB-DKST
     Dosage: 6 MG/KG, Q3W
     Route: 042
     Dates: start: 20240122
  14. OGIVRI [Suspect]
     Active Substance: TRASTUZUMAB-DKST
     Dosage: 6 MG/KG, Q3W
     Route: 042
     Dates: start: 20240122
  15. OGIVRI [Suspect]
     Active Substance: TRASTUZUMAB-DKST
     Dosage: 6 MG/KG, Q3W (INFUSION)
     Route: 042

REACTIONS (17)
  - Pulmonary congestion [Recovered/Resolved with Sequelae]
  - Hip arthroplasty [Unknown]
  - Sciatica [Not Recovered/Not Resolved]
  - Musculoskeletal pain [Not Recovered/Not Resolved]
  - Toxicity to various agents [Unknown]
  - Adverse drug reaction [Unknown]
  - Full blood count decreased [Not Recovered/Not Resolved]
  - Poor venous access [Unknown]
  - Weight increased [Unknown]
  - Haemoglobin decreased [Not Recovered/Not Resolved]
  - Weight decreased [Unknown]
  - Hypertension [Unknown]
  - Blood pressure decreased [Unknown]
  - Arthralgia [Unknown]
  - Arthritis [Unknown]
  - Inappropriate schedule of product administration [Unknown]
  - Off label use [Unknown]

NARRATIVE: CASE EVENT DATE: 20240905
